FAERS Safety Report 5585807-X (Version None)
Quarter: 2007Q4

REPORT INFORMATION
  Report Type: 
  Country: None (occurrence: None)
  Receive Date: 20071205
  Receipt Date: 20070313
  Transmission Date: 20080405
  Serious: Yes (Death, Hospitalization)
  Sender: FDA-Public Use
  Company Number: HQWYE624114MAR07

PATIENT
  Age: 18 Year
  Sex: Male

DRUGS (2)
  1. EFFEXOR XR [Suspect]
  2. SEROQUEL [Suspect]
     Indication: AFFECTIVE DISORDER
     Dosage: ^50 MG^
     Dates: start: 20050322

REACTIONS (9)
  - APATHY [None]
  - COMPLETED SUICIDE [None]
  - DEPRESSION [None]
  - DEPRESSION SUICIDAL [None]
  - ENERGY INCREASED [None]
  - INSOMNIA [None]
  - MOOD SWINGS [None]
  - SELF ESTEEM INFLATED [None]
  - SUICIDAL IDEATION [None]
